FAERS Safety Report 6318247-6 (Version None)
Quarter: 2009Q3

REPORT INFORMATION
  Report Type: 
  Country: None (occurrence: None)
  Receive Date: 20090821
  Receipt Date: 20090817
  Transmission Date: 20100115
  Serious: Yes (Life-Threatening)
  Sender: FDA-Public Use
  Company Number: US-ASTRAZENECA-2009SE08856

PATIENT
  Sex: Male

DRUGS (1)
  1. SEROQUEL [Suspect]
     Route: 048
     Dates: start: 20030101

REACTIONS (4)
  - HYPOGLYCAEMIA [None]
  - MYOCARDIAL INFARCTION [None]
  - OBESITY [None]
  - WEIGHT INCREASED [None]
